FAERS Safety Report 6213327-8 (Version None)
Quarter: 2009Q2

REPORT INFORMATION
  Report Type: 
  Country: None (occurrence: None)
  Receive Date: 20090603
  Receipt Date: 20090528
  Transmission Date: 20091009
  Serious: Yes (Other)
  Sender: FDA-Public Use
  Company Number: US-BRISTOL-MYERS SQUIBB COMPANY-14643100

PATIENT
  Age: 24 Year
  Sex: Female

DRUGS (4)
  1. REYATAZ [Suspect]
     Indication: ANTIRETROVIRAL THERAPY
     Route: 048
     Dates: start: 20090301
  2. KALETRA [Suspect]
     Indication: ANTIRETROVIRAL THERAPY
     Dosage: 4 DOSAGE FORM = 4 TABS/CAPS
     Route: 048
  3. RETROVIR [Suspect]
     Indication: ANTIRETROVIRAL THERAPY
     Route: 048
  4. EPIVIR [Suspect]
     Indication: ANTIRETROVIRAL THERAPY
     Route: 048

REACTIONS (2)
  - ABORTION SPONTANEOUS [None]
  - PREGNANCY [None]
